FAERS Safety Report 5717177-8 (Version None)
Quarter: 2008Q2

REPORT INFORMATION
  Report Type: 
  Country: None (occurrence: None)
  Receive Date: 20080423
  Receipt Date: 20080414
  Transmission Date: 20081010
  Serious: Yes (Life-Threatening, Hospitalization)
  Sender: FDA-Public Use
  Company Number: 2008AP000917

PATIENT
  Age: 77 Year
  Sex: Female

DRUGS (7)
  1. METFORMIN HCL [Suspect]
  2. GLIPIZIDE [Concomitant]
  3. ACETYLSALICYLIC ACID SRT [Concomitant]
  4. PIOGLITAZONE [Concomitant]
  5. HYDROCHLORIDE [Concomitant]
  6. VALSARTAN [Concomitant]
  7. DILTIAZEM [Concomitant]

REACTIONS (15)
  - ALANINE AMINOTRANSFERASE INCREASED [None]
  - ASPARTATE AMINOTRANSFERASE INCREASED [None]
  - BLOOD CHLORIDE DECREASED [None]
  - BLOOD GLUCOSE INCREASED [None]
  - BLOOD PRESSURE DIASTOLIC DECREASED [None]
  - BLOOD SODIUM INCREASED [None]
  - CARDIO-RESPIRATORY ARREST [None]
  - HAEMODIALYSIS [None]
  - HAEMOGLOBIN DECREASED [None]
  - LACTIC ACIDOSIS [None]
  - LOSS OF CONSCIOUSNESS [None]
  - METABOLIC ACIDOSIS [None]
  - PLATELET COUNT INCREASED [None]
  - RENAL FAILURE ACUTE [None]
  - WHITE BLOOD CELL COUNT DECREASED [None]
